FAERS Safety Report 16954288 (Version 1)
Quarter: 2019Q4

REPORT INFORMATION
  Report Type: Spontaneous
  Country: US (occurrence: US)
  Receive Date: 20191023
  Receipt Date: 20191023
  Transmission Date: 20200122
  Serious: No
  Sender: FDA-Public Use
  Company Number: US-ABBVIE-19K-163-2840057-00

PATIENT
  Sex: Female

DRUGS (1)
  1. LUPRON DEPOT [Suspect]
     Active Substance: LEUPROLIDE ACETATE
     Indication: PRODUCT USED FOR UNKNOWN INDICATION
     Route: 030

REACTIONS (8)
  - Dysstasia [Unknown]
  - Urinary tract disorder [Unknown]
  - Female reproductive tract disorder [Unknown]
  - Nervous system disorder [Unknown]
  - Insomnia [Unknown]
  - Gastrointestinal disorder [Unknown]
  - Anger [Unknown]
  - Pollakiuria [Unknown]
